FAERS Safety Report 4814861-5 (Version None)
Quarter: 2005Q4

REPORT INFORMATION
  Report Type: 
  Country: None (occurrence: None)
  Receive Date: 20051027
  Receipt Date: 20051027
  Transmission Date: 20060501
  Serious: Yes (Other)
  Sender: FDA-Public Use
  Company Number: None

PATIENT
  Age: 54 Year
  Sex: Male
  Weight: 61.5 kg

DRUGS (2)
  1. BACTRIM [Suspect]
  2. PROPRANOLOL HCL [Suspect]

REACTIONS (1)
  - PANCYTOPENIA [None]
